FAERS Safety Report 4423054-5 (Version None)
Quarter: 2004Q3

REPORT INFORMATION
  Report Type: 
  Country: None (occurrence: None)
  Receive Date: 20040806
  Receipt Date: 20040719
  Transmission Date: 20050211
  Serious: Yes (Other)
  Sender: FDA-Public Use
  Company Number: USA040773091

PATIENT
  Age: 50 Year
  Sex: Female

DRUGS (4)
  1. EVISTA [Suspect]
     Indication: OSTEOPOROSIS PROPHYLAXIS
     Dates: start: 20020401
  2. FOSAMAX [Concomitant]
  3. MULTIVITAMIN [Concomitant]
  4. CALCIUM [Concomitant]

REACTIONS (10)
  - AMENORRHOEA [None]
  - BLOOD DISORDER [None]
  - HYPOAESTHESIA [None]
  - MENOPAUSAL SYMPTOMS [None]
  - MENOPAUSE [None]
  - MUSCLE CRAMP [None]
  - MYALGIA [None]
  - NERVOUS SYSTEM DISORDER [None]
  - OEDEMA PERIPHERAL [None]
  - PAIN IN EXTREMITY [None]
